FAERS Safety Report 15072658 (Version 1)
Quarter: 2018Q2

REPORT INFORMATION
  Report Type: Spontaneous
  Country: US (occurrence: US)
  Receive Date: 20180627
  Receipt Date: 20180627
  Transmission Date: 20180711
  Serious: No
  Sender: FDA-Public Use
  Company Number: US-TEVA-2018-US-917593

PATIENT

DRUGS (1)
  1. VINORELBINE [Suspect]
     Active Substance: VINORELBINE\VINORELBINE TARTRATE
     Route: 043
     Dates: start: 201805

REACTIONS (3)
  - Pain [Unknown]
  - Bone pain [Unknown]
  - Myalgia [Unknown]

NARRATIVE: CASE EVENT DATE: 201805
